FAERS Safety Report 7809471-1 (Version None)
Quarter: 2011Q4

REPORT INFORMATION
  Report Type: 
  Country: None (occurrence: None)
  Receive Date: 20111012
  Receipt Date: 20110929
  Transmission Date: 20120403
  Serious: Yes (Other)
  Sender: FDA-Public Use
  Company Number: PHHY2011FR86725

PATIENT
  Age: 66 Year
  Sex: Male

DRUGS (1)
  1. EXFORGE [Suspect]
     Dosage: UNK UKN, UNK

REACTIONS (3)
  - VERTIGO [None]
  - NASAL OBSTRUCTION [None]
  - TACHYCARDIA [None]
